FAERS Safety Report 5426674-4 (Version None)
Quarter: 2007Q3

REPORT INFORMATION
  Report Type: 
  Country: None (occurrence: None)
  Receive Date: 20070827
  Receipt Date: 20070815
  Transmission Date: 20080115
  Serious: Yes (Other)
  Sender: FDA-Public Use
  Company Number: CZ-PFIZER INC-2007066132

PATIENT
  Age: 34 Year
  Sex: Female

DRUGS (8)
  1. XANAX [Suspect]
     Indication: ANXIETY
     Dosage: DAILY DOSE:2MG
     Route: 048
  2. ZOLOFT [Suspect]
     Indication: DEPRESSION
     Route: 048
  3. SEROPRAM [Suspect]
  4. AURORIX [Suspect]
  5. DEPREX [Suspect]
  6. VENLAFAXINE HCL [Suspect]
  7. LERIVON [Suspect]
  8. CIPRALEX [Concomitant]
     Route: 048

REACTIONS (7)
  - ANXIETY [None]
  - APATHY [None]
  - DRUG DEPENDENCE [None]
  - FEELING OF DESPAIR [None]
  - HEADACHE [None]
  - NAUSEA [None]
  - TENSION [None]
